FAERS Safety Report 4580809-4 (Version None)
Quarter: 2005Q1

REPORT INFORMATION
  Report Type: 
  Country: None (occurrence: None)
  Receive Date: 20050214
  Receipt Date: 20040607
  Transmission Date: 20050727
  Serious: No
  Sender: FDA-Public Use
  Company Number: US-GLAXOSMITHKLINE-A0513626A

PATIENT
  Sex: Male

DRUGS (8)
  1. LAMICTAL [Suspect]
     Indication: BIPOLAR DISORDER
     Dosage: 200MG PER DAY
     Route: 048
     Dates: start: 20030201
  2. SEROQUEL [Concomitant]
  3. EFFEXOR [Concomitant]
  4. PREVACID [Concomitant]
  5. VITAMIN C [Concomitant]
     Dosage: 1000MG PER DAY
  6. VITAMIN E [Concomitant]
  7. MULTIPLE VITAMIN [Concomitant]
  8. COENZYME Q10 [Concomitant]

REACTIONS (2)
  - MOUTH ULCERATION [None]
  - PEPTIC ULCER [None]
